FAERS Safety Report 7864574-0 (Version None)
Quarter: 2011Q4

REPORT INFORMATION
  Report Type: 
  Country: None (occurrence: None)
  Receive Date: 20111025
  Receipt Date: 20110927
  Transmission Date: 20120403
  Serious: Yes (Other)
  Sender: FDA-Public Use
  Company Number: FK201102119

PATIENT
  Age: 45 Year
  Sex: Male

DRUGS (2)
  1. GEMCITABINE [Suspect]
     Indication: LUNG SQUAMOUS CELL CARCINOMA STAGE III
     Dosage: 1000 MG/M2, ON DAYS 1 AND 8
  2. CISPLATIN [Suspect]
     Indication: LUNG SQUAMOUS CELL CARCINOMA STAGE III
     Dosage: 75 MG/M2, ON DAYS 1 OF EACH 21 DAY CYCLE

REACTIONS (8)
  - CONSTIPATION [None]
  - THROMBOCYTOPENIA [None]
  - SENSORY LOSS [None]
  - PARAPLEGIA [None]
  - MYELITIS TRANSVERSE [None]
  - NEUTROPENIA [None]
  - URINARY RETENTION [None]
  - NERVE COMPRESSION [None]
